FAERS Safety Report 14388408 (Version 1)
Quarter: 2018Q1

REPORT INFORMATION
  Report Type: Spontaneous
  Country: US (occurrence: US)
  Receive Date: 20180115
  Receipt Date: 20180115
  Transmission Date: 20180509
  Serious: Yes (Other)
  Sender: FDA-Public Use
  Company Number: US-SA-2017SA204214

PATIENT
  Age: 53 Year
  Sex: Female
  Weight: 61.23 kg

DRUGS (5)
  1. NEOSAR [Concomitant]
     Active Substance: CYCLOPHOSPHAMIDE
  2. ZOLPIDEM [Concomitant]
     Active Substance: ZOLPIDEM\ZOLPIDEM TARTRATE
  3. TAXOTERE [Suspect]
     Active Substance: DOCETAXEL
     Indication: BREAST CANCER
     Route: 051
     Dates: start: 20131114, end: 20131114
  4. TAXOTERE [Suspect]
     Active Substance: DOCETAXEL
     Indication: BREAST CANCER
     Route: 051
     Dates: start: 20140227, end: 20140227
  5. DOXORUBICIN [Concomitant]
     Active Substance: DOXORUBICIN

REACTIONS (2)
  - Psychological trauma [Unknown]
  - Alopecia [Not Recovered/Not Resolved]

NARRATIVE: CASE EVENT DATE: 201311
